FAERS Safety Report 17559473 (Version 12)
Quarter: 2024Q1

REPORT INFORMATION
  Report Type: Spontaneous
  Country: US (occurrence: US)
  Receive Date: 20200319
  Receipt Date: 20240220
  Transmission Date: 20240409
  Serious: Yes (Hospitalization)
  Sender: FDA-Public Use
  Company Number: US-BIOGEN-2020BI00849189

PATIENT
  Age: 59 Year
  Sex: Male

DRUGS (29)
  1. TECFIDERA [Suspect]
     Active Substance: DIMETHYL FUMARATE
     Indication: Multiple sclerosis
     Dosage: STARTING DOSE
     Route: 050
  2. TECFIDERA [Suspect]
     Active Substance: DIMETHYL FUMARATE
     Dosage: MAINTENANCE DOSE
     Route: 050
     Dates: end: 2018
  3. TECFIDERA [Suspect]
     Active Substance: DIMETHYL FUMARATE
     Dosage: STARTING DOSE
     Route: 050
     Dates: start: 201810
  4. TECFIDERA [Suspect]
     Active Substance: DIMETHYL FUMARATE
     Dosage: MAINTENANCE DOSE
     Route: 050
  5. TECFIDERA [Suspect]
     Active Substance: DIMETHYL FUMARATE
     Route: 050
     Dates: start: 20140110, end: 20180201
  6. TECFIDERA [Suspect]
     Active Substance: DIMETHYL FUMARATE
     Route: 050
     Dates: start: 20181024
  7. TECFIDERA [Suspect]
     Active Substance: DIMETHYL FUMARATE
     Route: 050
     Dates: start: 20140110, end: 20180201
  8. TECFIDERA [Suspect]
     Active Substance: DIMETHYL FUMARATE
     Route: 050
     Dates: start: 20140110, end: 20180201
  9. TECFIDERA [Suspect]
     Active Substance: DIMETHYL FUMARATE
     Route: 050
     Dates: start: 20181024
  10. TECFIDERA [Suspect]
     Active Substance: DIMETHYL FUMARATE
     Dosage: STARTING DOSE
     Route: 050
  11. TECFIDERA [Suspect]
     Active Substance: DIMETHYL FUMARATE
     Dosage: - MAINTENANCE DOSE
     Route: 050
  12. TECFIDERA [Suspect]
     Active Substance: DIMETHYL FUMARATE
     Dosage: MAINTENANCE DOSE
     Route: 050
  13. TECFIDERA [Suspect]
     Active Substance: DIMETHYL FUMARATE
     Route: 050
     Dates: end: 20180702
  14. TECFIDERA [Suspect]
     Active Substance: DIMETHYL FUMARATE
     Dosage: STARTING DOSE
     Route: 050
     Dates: start: 20181024
  15. TECFIDERA [Suspect]
     Active Substance: DIMETHYL FUMARATE
     Dosage: MAINTENANCE DOSE
     Route: 050
     Dates: end: 2018
  16. AVONEX [Suspect]
     Active Substance: INTERFERON BETA-1A
     Indication: Multiple sclerosis
     Route: 050
     Dates: start: 20001002
  17. AVONEX [Suspect]
     Active Substance: INTERFERON BETA-1A
     Route: 050
     Dates: start: 20001002
  18. AVONEX [Suspect]
     Active Substance: INTERFERON BETA-1A
  19. AVONEX [Suspect]
     Active Substance: INTERFERON BETA-1A
  20. AVONEX [Suspect]
     Active Substance: INTERFERON BETA-1A
  21. AVONEX [Suspect]
     Active Substance: INTERFERON BETA-1A
  22. AVONEX [Suspect]
     Active Substance: INTERFERON BETA-1A
  23. AVONEX [Suspect]
     Active Substance: INTERFERON BETA-1A
  24. AVONEX [Suspect]
     Active Substance: INTERFERON BETA-1A
  25. AVONEX [Suspect]
     Active Substance: INTERFERON BETA-1A
  26. AVONEX [Suspect]
     Active Substance: INTERFERON BETA-1A
  27. AVONEX [Suspect]
     Active Substance: INTERFERON BETA-1A
  28. AVONEX [Suspect]
     Active Substance: INTERFERON BETA-1A
  29. OCREVUS [Suspect]
     Active Substance: OCRELIZUMAB
     Indication: Multiple sclerosis
     Dosage: TRIED OCREVUS ABOUT 3 YEARS AGO
     Route: 050
     Dates: start: 201802

REACTIONS (16)
  - Blindness transient [Recovered/Resolved]
  - Gait inability [Recovered/Resolved]
  - Mobility decreased [Unknown]
  - Pneumonia [Recovered/Resolved]
  - Contusion [Recovered/Resolved]
  - Fall [Recovered/Resolved]
  - Spinal fracture [Recovered/Resolved]
  - Asthenia [Unknown]
  - Balance disorder [Not Recovered/Not Resolved]
  - Multiple sclerosis [Unknown]
  - Hypophagia [Recovered/Resolved]
  - Feeding disorder [Recovered/Resolved]
  - Diplopia [Not Recovered/Not Resolved]
  - Vision blurred [Not Recovered/Not Resolved]
  - Pyrexia [Recovered/Resolved]
  - Drug ineffective [Recovered/Resolved]

NARRATIVE: CASE EVENT DATE: 20140110
